FAERS Safety Report 12637485 (Version 2)
Quarter: 2016Q3

REPORT INFORMATION
  Report Type: Spontaneous
  Country: US (occurrence: US)
  Receive Date: 20160809
  Receipt Date: 20160810
  Transmission Date: 20161109
  Serious: No
  Sender: FDA-Public Use
  Company Number: US-BEH-2016062878

PATIENT
  Sex: Female
  Weight: 81.65 kg

DRUGS (20)
  1. PRIVIGEN [Suspect]
     Active Substance: HUMAN IMMUNOGLOBULIN G
     Dosage: AS DIRECTED
     Route: 042
     Dates: start: 20160303
  2. VISTARIL [Concomitant]
     Active Substance: HYDROXYZINE PAMOATE
  3. LEVORA [Concomitant]
     Active Substance: ETHINYL ESTRADIOL\LEVONORGESTREL
  4. OPANA [Concomitant]
     Active Substance: OXYMORPHONE HYDROCHLORIDE
  5. DIPHENHYDRAMINE. [Concomitant]
     Active Substance: DIPHENHYDRAMINE
  6. OXYCODONE [Concomitant]
     Active Substance: OXYCODONE
  7. VITAMIN B12 [Concomitant]
     Active Substance: CYANOCOBALAMIN
  8. SEROQUEL [Concomitant]
     Active Substance: QUETIAPINE FUMARATE
  9. LEVOXYL [Concomitant]
     Active Substance: LEVOTHYROXINE SODIUM
  10. PRIVIGEN [Suspect]
     Active Substance: HUMAN IMMUNOGLOBULIN G
     Indication: POLYNEUROPATHY
     Route: 042
  11. ACETAMINOPHEN. [Concomitant]
     Active Substance: ACETAMINOPHEN
  12. ORPHENADRINE [Concomitant]
     Active Substance: ORPHENADRINE
  13. VALIUM [Concomitant]
     Active Substance: DIAZEPAM
  14. HEPARIN [Concomitant]
     Active Substance: HEPARIN SODIUM
  15. SODIUM CHLORIDE. [Concomitant]
     Active Substance: SODIUM CHLORIDE
  16. TRILEPTAL [Concomitant]
     Active Substance: OXCARBAZEPINE
  17. ADVIL [Concomitant]
     Active Substance: IBUPROFEN
  18. PRIVIGEN [Suspect]
     Active Substance: HUMAN IMMUNOGLOBULIN G
     Route: 042
  19. LIDOCAINE. [Concomitant]
     Active Substance: LIDOCAINE
  20. EPIPEN [Concomitant]
     Active Substance: EPINEPHRINE

REACTIONS (3)
  - Fatigue [Unknown]
  - Eczema [Unknown]
  - Headache [Unknown]
